FAERS Safety Report 19373822 (Version 1)
Quarter: 2021Q2

REPORT INFORMATION
  Report Type: Spontaneous
  Country: US (occurrence: US)
  Receive Date: 20210603
  Receipt Date: 20210603
  Transmission Date: 20210717
  Serious: No
  Sender: FDA-Public Use
  Company Number: US-PFIZER INC-2021515287

PATIENT
  Age: 73 Year
  Sex: Female
  Weight: 90.72 kg

DRUGS (2)
  1. VALSARTAN. [Concomitant]
     Active Substance: VALSARTAN
     Dosage: 2?80MG TABLETS, TAKEN DAILY
  2. DOFETILIDE. [Suspect]
     Active Substance: DOFETILIDE
     Indication: ATRIAL FIBRILLATION
     Dosage: 250 UG (ORANGE OR PEACH CAPSULE:1 IN MORNING,1 AT NIGHT BEFORE BED,12 HOURS APART)

REACTIONS (6)
  - Headache [Unknown]
  - Hypoacusis [Unknown]
  - Oral pain [Not Recovered/Not Resolved]
  - Weight decreased [Unknown]
  - Dysgeusia [Unknown]
  - Blood pressure fluctuation [Unknown]

NARRATIVE: CASE EVENT DATE: 202011
